FAERS Safety Report 13878831 (Version 1)
Quarter: 2017Q3

REPORT INFORMATION
  Report Type: Spontaneous
  Country: US (occurrence: US)
  Receive Date: 20170817
  Receipt Date: 20170817
  Transmission Date: 20171127
  Serious: No
  Sender: FDA-Public Use
  Company Number: US-SYNERGY PHARMACEUTICALS INC-US-2017SNG000074

PATIENT

DRUGS (3)
  1. PEPPERMINT OIL [Concomitant]
     Active Substance: PEPPERMINT OIL
     Indication: PROLAPSE
     Dosage: UNK
  2. TRULANCE [Suspect]
     Active Substance: PLECANATIDE
     Indication: PRODUCT USED FOR UNKNOWN INDICATION
     Dosage: 3 MG, QD (EVERY MORNING)
     Dates: start: 20170520
  3. METAMUCIL [Suspect]
     Active Substance: PLANTAGO SEED
     Indication: PRODUCT USED FOR UNKNOWN INDICATION
     Dosage: UNK

REACTIONS (4)
  - Flatulence [Not Recovered/Not Resolved]
  - Malaise [Not Recovered/Not Resolved]
  - Diarrhoea [Not Recovered/Not Resolved]
  - Feeling abnormal [Not Recovered/Not Resolved]

NARRATIVE: CASE EVENT DATE: 201705
